FAERS Safety Report 4701409-9 (Version None)
Quarter: 2005Q2

REPORT INFORMATION
  Report Type: 
  Country: None (occurrence: None)
  Receive Date: 20050624
  Receipt Date: 20050330
  Transmission Date: 20051028
  Serious: No
  Sender: FDA-Public Use
  Company Number: 2005BI007290

PATIENT
  Age: 50 Year
  Sex: Male

DRUGS (1)
  1. NATALIZUMAB [Suspect]
     Indication: MULTIPLE SCLEROSIS
     Dosage: UNKNOWN;UNK;IV
     Route: 042
     Dates: start: 20050131, end: 20050131

REACTIONS (3)
  - MULTIPLE SCLEROSIS RELAPSE [None]
  - RASH [None]
  - SWELLING FACE [None]
